FAERS Safety Report 4453218-6 (Version None)
Quarter: 2004Q3

REPORT INFORMATION
  Report Type: 
  Country: None (occurrence: None)
  Receive Date: 20040901
  Receipt Date: 20040629
  Transmission Date: 20050211
  Serious: Yes (Other)
  Sender: FDA-Public Use
  Company Number: US081872

PATIENT
  Sex: Female

DRUGS (4)
  1. ENBREL [Suspect]
     Indication: RHEUMATOID ARTHRITIS
     Dosage: 25 MG, 2 IN 1 WEEKS, SC
     Route: 058
     Dates: start: 20010101, end: 20040409
  2. IBUPROFEN [Concomitant]
  3. METHOTREXATE [Concomitant]
  4. ESTROGENS [Concomitant]

REACTIONS (2)
  - BREAST CANCER STAGE II [None]
  - METASTASES TO LYMPH NODES [None]
